FAERS Safety Report 14372840 (Version 3)
Quarter: 2018Q1

REPORT INFORMATION
  Report Type: Report from Study
  Country: PL (occurrence: PL)
  Receive Date: 20180110
  Receipt Date: 20180216
  Transmission Date: 20180509
  Serious: Yes (Hospitalization)
  Sender: FDA-Public Use
  Company Number: PL-PFIZER INC-2018001209

PATIENT
  Age: 69 Year
  Sex: Male
  Weight: 69.5 kg

DRUGS (9)
  1. FINASTERIDE. [Concomitant]
     Active Substance: FINASTERIDE
     Indication: BENIGN PROSTATIC HYPERPLASIA
     Dosage: UNK
     Dates: start: 20130101
  2. DIAPREL [Concomitant]
     Active Substance: GLICLAZIDE
     Indication: HYPERGLYCAEMIA
     Dosage: UNK
     Dates: start: 20151022
  3. BIOSOTAL [Concomitant]
     Indication: ATRIAL FIBRILLATION
     Dosage: UNK
     Dates: start: 20150511
  4. ROSUVASTATIN. [Concomitant]
     Active Substance: ROSUVASTATIN
     Indication: PROPHYLAXIS
     Dosage: UNK
     Dates: start: 20140909
  5. TEMSIROLIMUS [Suspect]
     Active Substance: TEMSIROLIMUS
     Indication: MANTLE CELL LYMPHOMA
     Dosage: 75 MG, ONCE A WEEK
     Route: 042
     Dates: start: 20140918, end: 20171214
  6. XARELTO [Concomitant]
     Active Substance: RIVAROXABAN
     Indication: ATRIAL FIBRILLATION
     Dosage: UNK
     Dates: start: 20150511, end: 20171214
  7. DESIPRAMINE [Suspect]
     Active Substance: DESIPRAMINE
     Indication: MANTLE CELL LYMPHOMA
     Dosage: 50 MG, ONCE A WEEK
     Route: 048
     Dates: start: 20140911, end: 20140919
  8. PIRAMIL [Concomitant]
     Active Substance: RAMIPRIL
     Indication: ATRIAL FIBRILLATION
     Dosage: UNK
     Dates: start: 20150511
  9. NEOPARIN [Concomitant]
     Indication: ATRIAL FIBRILLATION
     Dosage: UNK
     Dates: end: 20171214

REACTIONS (1)
  - Cataract [Recovered/Resolved]

NARRATIVE: CASE EVENT DATE: 201607
